FAERS Safety Report 18327532 (Version 1)
Quarter: 2020Q3

REPORT INFORMATION
  Report Type: Other
  Country: CN (occurrence: CN)
  Receive Date: 20200930
  Receipt Date: 20200930
  Transmission Date: 20201103
  Serious: Yes (Life-Threatening, Hospitalization, Other)
  Sender: FDA-Public Use
  Company Number: CN-NUVO PHARMACEUTICALS INC-2092298

PATIENT
  Age: 49 Year
  Sex: Male

DRUGS (4)
  1. TETANUS IMMUNOGLOBULIN [Concomitant]
     Active Substance: HUMAN CLOSTRIDIUM TETANI TOXOID IMMUNE GLOBULIN
     Route: 030
  2. METRONIDAZOLE. [Concomitant]
     Active Substance: METRONIDAZOLE
     Route: 042
  3. DIAZEPAM. [Suspect]
     Active Substance: DIAZEPAM
     Indication: SEIZURE
     Route: 042
  4. PHENOBARBITAL. [Suspect]
     Active Substance: PHENOBARBITAL
     Route: 030

REACTIONS (6)
  - Tooth fracture [Unknown]
  - Drug ineffective [Unknown]
  - Muscle rigidity [Recovered/Resolved]
  - Opisthotonus [Recovered/Resolved]
  - Trismus [Recovered/Resolved]
  - Laryngospasm [Recovered/Resolved]
